FAERS Safety Report 19304977 (Version 2)
Quarter: 2023Q1

REPORT INFORMATION
  Report Type: Spontaneous
  Country: US (occurrence: US)
  Receive Date: 20210526
  Receipt Date: 20230127
  Transmission Date: 20230417
  Serious: No
  Sender: FDA-Public Use
  Company Number: US-009507513-2102USA003789

PATIENT
  Sex: Male

DRUGS (3)
  1. REMERON [Suspect]
     Active Substance: MIRTAZAPINE
     Indication: Depression
     Dosage: UNK
     Route: 048
     Dates: start: 199801
  2. REMERON [Suspect]
     Active Substance: MIRTAZAPINE
     Dosage: 2 PACKAGES, 30 PILLS EACH
     Route: 048
     Dates: start: 202012
  3. REMERON [Suspect]
     Active Substance: MIRTAZAPINE
     Dosage: 2 PACKAGES, 30 PILLS EACH
     Route: 048
     Dates: start: 202012

REACTIONS (3)
  - Insomnia [Not Recovered/Not Resolved]
  - Anxiety [Not Recovered/Not Resolved]
  - Depression [Not Recovered/Not Resolved]

NARRATIVE: CASE EVENT DATE: 20200101
